FAERS Safety Report 21154078 (Version 3)
Quarter: 2022Q3

REPORT INFORMATION
  Report Type: Report from Study
  Country: US (occurrence: US)
  Receive Date: 20220801
  Receipt Date: 20220923
  Transmission Date: 20221027
  Serious: No
  Sender: FDA-Public Use
  Company Number: US-NOVARTISTESTPH-NVSC2022US169045

PATIENT
  Age: 28 Year
  Sex: Female

DRUGS (3)
  1. ILARIS [Suspect]
     Active Substance: CANAKINUMAB
     Indication: Cryopyrin associated periodic syndrome
     Dosage: 150 MG, EVERY 8 WEEKS
     Route: 058
     Dates: start: 202202
  2. ILARIS [Suspect]
     Active Substance: CANAKINUMAB
     Indication: Chronic infantile neurological cutaneous and articular syndrome
     Dosage: 150 MG, EVERY 8 WEEKS
     Route: 058
     Dates: start: 20220311
  3. KINERET [Concomitant]
     Active Substance: ANAKINRA
     Indication: Product used for unknown indication
     Dosage: UNK
     Route: 065

REACTIONS (1)
  - Maternal exposure during pregnancy [Unknown]

NARRATIVE: CASE EVENT DATE: 20220201
